FAERS Safety Report 4931120-0 (Version None)
Quarter: 2006Q1

REPORT INFORMATION
  Report Type: 
  Country: None (occurrence: None)
  Receive Date: 20060302
  Receipt Date: 20051025
  Transmission Date: 20060701
  Serious: Yes (Hospitalization)
  Sender: FDA-Public Use
  Company Number: JP-MERCK-0510USA09296

PATIENT
  Age: 61 Year
  Sex: Female
  Weight: 40 kg

DRUGS (9)
  1. DALACIN [Concomitant]
     Indication: PANCREATITIS
     Route: 042
     Dates: start: 20050915, end: 20050929
  2. FIRSTCIN [Concomitant]
     Indication: PANCREATITIS
     Route: 042
     Dates: start: 20050917, end: 20051002
  3. NICHOLIN [Concomitant]
     Indication: PANCREATITIS
     Route: 042
     Dates: start: 20050915, end: 20050929
  4. PRIMAXIN [Suspect]
     Indication: PANCREATITIS
     Route: 041
     Dates: start: 20050913, end: 20050918
  5. NAFAMOSTAT MESYLATE [Suspect]
     Indication: PANCREATITIS
     Route: 041
     Dates: start: 20050907, end: 20051023
  6. MIRACLID [Suspect]
     Indication: PANCREATITIS
     Route: 042
     Dates: start: 20050913, end: 20050928
  7. SANDOSTATIN [Suspect]
     Indication: PANCREATITIS
     Route: 058
     Dates: start: 20050914, end: 20051010
  8. PENTCILLIN [Suspect]
     Indication: PANCREATITIS
     Route: 041
     Dates: start: 20050907, end: 20050916
  9. PRODIF [Concomitant]
     Indication: PANCREATITIS
     Route: 042
     Dates: start: 20050915, end: 20051006

REACTIONS (9)
  - ALANINE AMINOTRANSFERASE INCREASED [None]
  - ASPARTATE AMINOTRANSFERASE INCREASED [None]
  - BLOOD ALKALINE PHOSPHATASE INCREASED [None]
  - BLOOD CREATINE PHOSPHOKINASE INCREASED [None]
  - CONTRAST MEDIA REACTION [None]
  - GAMMA-GLUTAMYLTRANSFERASE INCREASED [None]
  - HEPATIC FUNCTION ABNORMAL [None]
  - JAUNDICE [None]
  - URTICARIA [None]
